FAERS Safety Report 10997418 (Version 1)
Quarter: 2015Q2

REPORT INFORMATION
  Report Type: Spontaneous
  Country: US (occurrence: None)
  Receive Date: 20150407
  Receipt Date: 20150407
  Transmission Date: 20150821
  Serious: Yes (Other)
  Sender: FDA-Public Use
  Company Number: None

PATIENT
  Age: 68 Year
  Sex: Male

DRUGS (1)
  1. TESTOPEL [Suspect]
     Active Substance: TESTOSTERONE
     Dosage: Q 4 MONTHS
     Route: 058
     Dates: start: 20150310

REACTIONS (3)
  - Hypersensitivity [None]
  - Rash [None]
  - Blister [None]

NARRATIVE: CASE EVENT DATE: 20150315
